FAERS Safety Report 6146647-6 (Version None)
Quarter: 2009Q2

REPORT INFORMATION
  Report Type: 
  Country: None (occurrence: None)
  Receive Date: 20090403
  Receipt Date: 20090320
  Transmission Date: 20091009
  Serious: Yes (Other)
  Sender: FDA-Public Use
  Company Number: 2009S1001685

PATIENT
  Age: 55 Year
  Sex: Female
  Weight: 109.7705 kg

DRUGS (25)
  1. TRIAMTERENE AND HYDROCHLOROTHIAZIDE [Suspect]
     Indication: HYPERTENSION
     Dosage: 37.5 MG; 25MG; 18.75MG; 12.5MG; 37.5MG; 25MG; (DAILY ORAL)
     Route: 048
     Dates: start: 20090101, end: 20090101
  2. TRIAMTERENE AND HYDROCHLOROTHIAZIDE [Suspect]
     Indication: OEDEMA
     Dosage: 37.5 MG; 25MG; 18.75MG; 12.5MG; 37.5MG; 25MG; (DAILY ORAL)
     Route: 048
     Dates: start: 20090101, end: 20090101
  3. TRIAMTERENE AND HYDROCHLOROTHIAZIDE [Suspect]
     Indication: OEDEMA PERIPHERAL
     Dosage: 37.5 MG; 25MG; 18.75MG; 12.5MG; 37.5MG; 25MG; (DAILY ORAL)
     Route: 048
     Dates: start: 20090101, end: 20090101
  4. TRIAMTERENE AND HYDROCHLOROTHIAZIDE [Suspect]
     Indication: HYPERTENSION
     Dosage: 37.5 MG; 25MG; 18.75MG; 12.5MG; 37.5MG; 25MG; (DAILY ORAL)
     Route: 048
     Dates: start: 20090101, end: 20090101
  5. TRIAMTERENE AND HYDROCHLOROTHIAZIDE [Suspect]
     Indication: OEDEMA
     Dosage: 37.5 MG; 25MG; 18.75MG; 12.5MG; 37.5MG; 25MG; (DAILY ORAL)
     Route: 048
     Dates: start: 20090101, end: 20090101
  6. TRIAMTERENE AND HYDROCHLOROTHIAZIDE [Suspect]
     Indication: OEDEMA PERIPHERAL
     Dosage: 37.5 MG; 25MG; 18.75MG; 12.5MG; 37.5MG; 25MG; (DAILY ORAL)
     Route: 048
     Dates: start: 20090101, end: 20090101
  7. TRIAMTERENE AND HYDROCHLOROTHIAZIDE [Suspect]
     Indication: HYPERTENSION
     Dosage: 37.5 MG; 25MG; 18.75MG; 12.5MG; 37.5MG; 25MG; (DAILY ORAL)
     Route: 048
     Dates: start: 20090101, end: 20090101
  8. TRIAMTERENE AND HYDROCHLOROTHIAZIDE [Suspect]
     Indication: OEDEMA
     Dosage: 37.5 MG; 25MG; 18.75MG; 12.5MG; 37.5MG; 25MG; (DAILY ORAL)
     Route: 048
     Dates: start: 20090101, end: 20090101
  9. TRIAMTERENE AND HYDROCHLOROTHIAZIDE [Suspect]
     Indication: OEDEMA PERIPHERAL
     Dosage: 37.5 MG; 25MG; 18.75MG; 12.5MG; 37.5MG; 25MG; (DAILY ORAL)
     Route: 048
     Dates: start: 20090101, end: 20090101
  10. TRIAMTERENE AND HYDROCHLOROTHIAZIDE [Suspect]
     Indication: HYPERTENSION
     Dosage: 37.5 MG; 25MG; 18.75MG; 12.5MG; 37.5MG; 25MG; (DAILY ORAL)
     Route: 048
     Dates: start: 20090101, end: 20090101
  11. TRIAMTERENE AND HYDROCHLOROTHIAZIDE [Suspect]
     Indication: OEDEMA
     Dosage: 37.5 MG; 25MG; 18.75MG; 12.5MG; 37.5MG; 25MG; (DAILY ORAL)
     Route: 048
     Dates: start: 20090101, end: 20090101
  12. TRIAMTERENE AND HYDROCHLOROTHIAZIDE [Suspect]
     Indication: OEDEMA PERIPHERAL
     Dosage: 37.5 MG; 25MG; 18.75MG; 12.5MG; 37.5MG; 25MG; (DAILY ORAL)
     Route: 048
     Dates: start: 20090101, end: 20090101
  13. TRIAMTERENE AND HYDROCHLOROTHIAZIDE [Suspect]
     Indication: HYPERTENSION
     Dosage: 37.5 MG; 25MG; 18.75MG; 12.5MG; 37.5MG; 25MG; (DAILY ORAL)
     Route: 048
     Dates: start: 20090116, end: 20090101
  14. TRIAMTERENE AND HYDROCHLOROTHIAZIDE [Suspect]
     Indication: OEDEMA
     Dosage: 37.5 MG; 25MG; 18.75MG; 12.5MG; 37.5MG; 25MG; (DAILY ORAL)
     Route: 048
     Dates: start: 20090116, end: 20090101
  15. TRIAMTERENE AND HYDROCHLOROTHIAZIDE [Suspect]
     Indication: OEDEMA PERIPHERAL
     Dosage: 37.5 MG; 25MG; 18.75MG; 12.5MG; 37.5MG; 25MG; (DAILY ORAL)
     Route: 048
     Dates: start: 20090116, end: 20090101
  16. TRIAMTERENE AND HYDROCHLOROTHIAZIDE [Suspect]
     Indication: HYPERTENSION
     Dosage: 37.5 MG; 25MG; 18.75MG; 12.5MG; 37.5MG; 25MG; (DAILY ORAL)
     Route: 048
     Dates: start: 20090116, end: 20090101
  17. TRIAMTERENE AND HYDROCHLOROTHIAZIDE [Suspect]
     Indication: OEDEMA
     Dosage: 37.5 MG; 25MG; 18.75MG; 12.5MG; 37.5MG; 25MG; (DAILY ORAL)
     Route: 048
     Dates: start: 20090116, end: 20090101
  18. TRIAMTERENE AND HYDROCHLOROTHIAZIDE [Suspect]
     Indication: OEDEMA PERIPHERAL
     Dosage: 37.5 MG; 25MG; 18.75MG; 12.5MG; 37.5MG; 25MG; (DAILY ORAL)
     Route: 048
     Dates: start: 20090116, end: 20090101
  19. TRIAMTERENE AND HYDROCHLOROTHIAZIDE [Suspect]
     Indication: HYPERTENSION
     Dosage: DAILY; ORAL
     Route: 048
     Dates: start: 20090101
  20. TRIAMTERENE AND HYDROCHLOROTHIAZIDE [Suspect]
     Indication: OEDEMA PERIPHERAL
     Dosage: DAILY; ORAL
     Route: 048
     Dates: start: 20090101
  21. HYDROCHLOROTHIAZIDE [Suspect]
     Indication: OEDEMA PERIPHERAL
     Dosage: 25 MG; ORAL
     Route: 048
     Dates: start: 20090112
  22. IBUPROFEN [Concomitant]
  23. ENALAPRIL MALEATE [Concomitant]
  24. TRAMADOL [Concomitant]
  25. BACLOFEN [Concomitant]

REACTIONS (6)
  - ASTHENIA [None]
  - CHEST PAIN [None]
  - DIZZINESS [None]
  - DYSPNOEA [None]
  - MUSCULAR WEAKNESS [None]
  - MYOCARDIAL INFARCTION [None]
